FAERS Safety Report 4714899-2 (Version None)
Quarter: 2005Q3

REPORT INFORMATION
  Report Type: 
  Country: None (occurrence: None)
  Receive Date: 20050713
  Receipt Date: 20050628
  Transmission Date: 20060218
  Serious: Yes (Death)
  Sender: FDA-Public Use
  Company Number: 11731

PATIENT
  Sex: Female

DRUGS (2)
  1. FLUOROURACIL [Suspect]
     Indication: ANAL CANCER
  2. MITOMYCIN [Suspect]
     Indication: ANAL CANCER

REACTIONS (2)
  - BREAST CANCER METASTATIC [None]
  - RETROPERITONEAL FIBROSIS [None]
